FAERS Safety Report 7743414-4 (Version None)
Quarter: 2011Q3

REPORT INFORMATION
  Report Type: 
  Country: None (occurrence: None)
  Receive Date: 20110912
  Receipt Date: 20110907
  Transmission Date: 20111222
  Serious: Yes (Other)
  Sender: FDA-Public Use
  Company Number: PHHY2011US44526

PATIENT
  Sex: Female

DRUGS (6)
  1. KLONOPIN [Concomitant]
     Dosage: 05 MG, QD
  2. CLONAZEPAM [Concomitant]
     Indication: ANXIETY
     Dosage: 0.5 MG, QHS
  3. EXTAVIA [Suspect]
     Indication: MULTIPLE SCLEROSIS
     Dosage: 0.25 MG, QOD
     Route: 058
     Dates: start: 20100723
  4. CITALOPRAM HYDROBROMIDE [Concomitant]
     Dosage: 20 MG, QD
  5. BONIVA [Concomitant]
     Indication: BONE DISORDER
     Dosage: UNK UKN, UNK
  6. CELEXA [Concomitant]
     Indication: DEPRESSION
     Dosage: 20 MG, QD

REACTIONS (1)
  - RECTAL HAEMORRHAGE [None]
